FAERS Safety Report 19066337 (Version 1)
Quarter: 2021Q1

REPORT INFORMATION
  Report Type: Spontaneous
  Country: MT (occurrence: MT)
  Receive Date: 20210328
  Receipt Date: 20210328
  Transmission Date: 20210420
  Serious: Yes (Death)
  Sender: FDA-Public Use
  Company Number: MT-TEVA-2021-MT-1894013

PATIENT
  Age: 76 Year
  Sex: Female
  Weight: 73 kg

DRUGS (7)
  1. DEMECLOCYCLINE [Suspect]
     Active Substance: DEMECLOCYCLINE
     Indication: HYPONATRAEMIA
     Dosage: 1200 MILLIGRAM DAILY;
     Route: 065
     Dates: start: 20210111, end: 20210218
  2. BUMETANIDE. [Concomitant]
     Active Substance: BUMETANIDE
     Indication: CARDIAC FAILURE
     Dosage: 2 MILLIGRAM DAILY; UNIT DOSE: 1MG BD FOR HF
     Dates: start: 20210212
  3. METHOTREXATE. [Suspect]
     Active Substance: METHOTREXATE
     Indication: POLYMYALGIA RHEUMATICA
     Dosage: UNIT DOSE: 12.5MG WEEKLY LONG TERM USE AT LEAST SINCE 2013
     Dates: end: 20210218
  4. ENOXAPARIN [Suspect]
     Active Substance: ENOXAPARIN
     Indication: PROPHYLAXIS
     Dosage: 40 MILLIGRAM DAILY;
     Route: 065
     Dates: start: 20210110, end: 20210218
  5. PREDNISOLONE. [Concomitant]
     Active Substance: PREDNISOLONE
     Indication: POLYMYALGIA RHEUMATICA
     Dosage: 5 MILLIGRAM DAILY; LONG TERM
  6. GLICLAZIDE [Concomitant]
     Active Substance: GLICLAZIDE
     Indication: POLYMYALGIA RHEUMATICA
     Dosage: 240 MILLIGRAM DAILY; UNIT DOSE: 80MG TDS LONG TERM
  7. DIGOXIN. [Concomitant]
     Active Substance: DIGOXIN
     Indication: ATRIAL FIBRILLATION
     Dosage: UNIT DOSE: 0.125MG LONG TERM FOR AF

REACTIONS (1)
  - Pancytopenia [Fatal]

NARRATIVE: CASE EVENT DATE: 20210218
